FAERS Safety Report 9725995 (Version 2)
Quarter: 2013Q4

REPORT INFORMATION
  Report Type: Spontaneous
  Country: KR (occurrence: KR)
  Receive Date: 20131203
  Receipt Date: 20131220
  Transmission Date: 20140711
  Serious: Yes (Death, Other)
  Sender: FDA-Public Use
  Company Number: KR-ASTRAZENECA-2013SE87655

PATIENT
  Age: 45 Year
  Sex: Female
  Weight: 63.8 kg

DRUGS (17)
  1. PROPOFOL [Suspect]
     Indication: BLOOD PRESSURE ABNORMAL
     Route: 042
  2. PROPOFOL [Suspect]
     Indication: MAINTENANCE OF ANAESTHESIA
     Route: 042
  3. PROPOFOL [Suspect]
     Indication: BLOOD PRESSURE ABNORMAL
     Route: 042
  4. PROPOFOL [Suspect]
     Indication: MAINTENANCE OF ANAESTHESIA
     Route: 042
  5. PROPOFOL [Suspect]
     Indication: BLOOD PRESSURE ABNORMAL
     Dosage: 4.9 MG/KG/H - 9.4 MG/KG/H
     Route: 042
  6. PROPOFOL [Suspect]
     Indication: MAINTENANCE OF ANAESTHESIA
     Dosage: 4.9 MG/KG/H - 9.4 MG/KG/H
     Route: 042
  7. PROPOFOL [Suspect]
     Indication: BLOOD PRESSURE ABNORMAL
     Dosage: 6.66 MG/KG/H FOR 48 HOURS
     Route: 042
  8. PROPOFOL [Suspect]
     Indication: MAINTENANCE OF ANAESTHESIA
     Dosage: 6.66 MG/KG/H FOR 48 HOURS
     Route: 042
  9. DOPAMINE [Concomitant]
     Indication: BLOOD PRESSURE
     Dosage: 6 UG/KG/MN
  10. DOPAMINE [Concomitant]
     Indication: BLOOD PRESSURE
     Dosage: 20 UG/KG/MN
  11. DOPAMINE [Concomitant]
     Indication: BLOOD PRESSURE
     Dosage: 40 UG/KG/MN
  12. NOREPINEPHRINE [Concomitant]
     Indication: BLOOD PRESSURE ABNORMAL
     Dosage: 0.1 UG/KG/MN
  13. NOREPINEPHRINE [Concomitant]
     Indication: BLOOD PRESSURE ABNORMAL
     Dosage: 0.37 UG/KG/MN
  14. NOREPINEPHRINE [Concomitant]
     Indication: BLOOD PRESSURE ABNORMAL
     Dosage: 0.56 UG/KG/MN
  15. DOBUTAMINE [Concomitant]
     Indication: BLOOD PRESSURE ABNORMAL
     Dosage: 32 UG/KG/MN
  16. VASOPRESSIN [Concomitant]
     Indication: BLOOD PRESSURE ABNORMAL
     Dosage: 0.01 IU/MIN
  17. REMIFENTANIL [Concomitant]
     Indication: MAINTENANCE OF ANAESTHESIA

REACTIONS (3)
  - Overdose [Unknown]
  - Propofol infusion syndrome [Fatal]
  - Off label use [Unknown]
